FAERS Safety Report 24967763 (Version 1)
Quarter: 2025Q1

REPORT INFORMATION
  Report Type: Report from Study
  Country: US (occurrence: US)
  Receive Date: 20250214
  Receipt Date: 20250214
  Transmission Date: 20250409
  Serious: Yes (Other)
  Sender: ABBVIE
  Company Number: US-ABBVIE-6130161

PATIENT
  Age: 65 Year
  Sex: Male

DRUGS (1)
  1. RINVOQ [Suspect]
     Active Substance: UPADACITINIB
     Indication: Product used for unknown indication
     Route: 048
     Dates: start: 20250130

REACTIONS (13)
  - Transient ischaemic attack [Recovering/Resolving]
  - Seizure [Recovering/Resolving]
  - Fall [Unknown]
  - Eye movement disorder [Unknown]
  - Anal incontinence [Unknown]
  - Blood pressure abnormal [Unknown]
  - Unresponsive to stimuli [Unknown]
  - Vomiting [Unknown]
  - Aphasia [Unknown]
  - Musculoskeletal disorder [Unknown]
  - Fatigue [Unknown]
  - Brain fog [Unknown]
  - Urinary incontinence [Unknown]

NARRATIVE: CASE EVENT DATE: 20250101
